FAERS Safety Report 5325443-3 (Version None)
Quarter: 2007Q2

REPORT INFORMATION
  Report Type: 
  Country: None (occurrence: None)
  Receive Date: 20070515
  Receipt Date: 20070507
  Transmission Date: 20071010
  Serious: Yes (Hospitalization)
  Sender: FDA-Public Use
  Company Number: FRWYE595807MAY07

PATIENT
  Age: 41 Year
  Sex: Male

DRUGS (11)
  1. EFFEXOR XR [Suspect]
     Dosage: 75 MG TOTAL DAILY
     Route: 048
     Dates: start: 20070315, end: 20070326
  2. SOLUPRED [Concomitant]
     Route: 048
     Dates: start: 19980101
  3. NEORAL [Concomitant]
     Route: 048
     Dates: start: 19980101
  4. DAFALGAN [Concomitant]
     Dosage: UNKNOWN
  5. CELLCEPT [Concomitant]
     Route: 048
     Dates: start: 19980101, end: 20070327
  6. CELLCEPT [Concomitant]
     Route: 048
     Dates: start: 20070329, end: 20070101
  7. CELLCEPT [Concomitant]
     Route: 048
     Dates: start: 20070101
  8. OGAST [Concomitant]
     Dosage: UNKNOWN
     Route: 048
  9. SPECIAFOLDINE [Concomitant]
     Dosage: UNKNOWN
     Route: 048
  10. SECTRAL [Concomitant]
     Route: 048
  11. LESCOL [Concomitant]
     Route: 048

REACTIONS (6)
  - AGRANULOCYTOSIS [None]
  - EAR INFECTION [None]
  - GRANULOCYTES MATURATION ARREST [None]
  - PHARYNGITIS [None]
  - PYREXIA [None]
  - RHINITIS [None]
